FAERS Safety Report 7318535-0 (Version None)
Quarter: 2011Q1

REPORT INFORMATION
  Report Type: 
  Country: None (occurrence: None)
  Receive Date: 20110217
  Receipt Date: 20110217
  Transmission Date: 20110831
  Serious: Yes (Other)
  Sender: FDA-Public Use
  Company Number: None

PATIENT
  Age: 17 Year
  Sex: Male
  Weight: 90.7194 kg

DRUGS (1)
  1. ZYRTEC [Suspect]
     Indication: SEASONAL ALLERGY
     Dosage: 10MG PER DAY
     Dates: start: 20080512, end: 20110216

REACTIONS (4)
  - INSOMNIA [None]
  - PRURITUS [None]
  - DISTURBANCE IN ATTENTION [None]
  - DRUG DEPENDENCE [None]
